FAERS Safety Report 10762446 (Version 1)
Quarter: 2015Q1

REPORT INFORMATION
  Report Type: Report from Study
  Country: US (occurrence: US)
  Receive Date: 20150204
  Receipt Date: 20150204
  Transmission Date: 20150721
  Serious: Yes (Other)
  Sender: FDA-Public Use
  Company Number: PHEH2015US002071

PATIENT
  Sex: Female

DRUGS (1)
  1. ZOMETA [Suspect]
     Active Substance: ZOLEDRONIC ACID
     Indication: BREAST CANCER
     Dosage: UNK UNK, QMO
     Route: 065
     Dates: start: 201405

REACTIONS (6)
  - Pulmonary mass [Unknown]
  - Sensitivity of teeth [Unknown]
  - Cough [Unknown]
  - Metastases to bone [Unknown]
  - Arthralgia [Unknown]
  - Metabolic disorder [Unknown]
